FAERS Safety Report 25352280 (Version 1)
Quarter: 2025Q2

REPORT INFORMATION
  Report Type: Report from Study
  Country: GR (occurrence: GR)
  Receive Date: 20250523
  Receipt Date: 20250523
  Transmission Date: 20250717
  Serious: Yes (Hospitalization, Other)
  Sender: ABBVIE
  Company Number: GR-ABBVIE-6249839

PATIENT
  Age: 81 Year
  Sex: Male
  Weight: 78 kg

DRUGS (14)
  1. FOSCARBIDOPA\FOSLEVODOPA [Suspect]
     Active Substance: FOSCARBIDOPA\FOSLEVODOPA
     Indication: Parkinson^s disease
     Route: 050
     Dates: start: 20211020
  2. FOSCARBIDOPA\FOSLEVODOPA [Suspect]
     Active Substance: FOSCARBIDOPA\FOSLEVODOPA
     Route: 050
  3. FOSCARBIDOPA\FOSLEVODOPA [Suspect]
     Active Substance: FOSCARBIDOPA\FOSLEVODOPA
     Route: 050
  4. Hydreasyn [Concomitant]
     Indication: Product used for unknown indication
     Route: 048
  5. Seropram [Concomitant]
     Indication: Product used for unknown indication
     Dosage: 1X1 (AT NOON, AFTER EATING)?FORM STRENGTH: 20 MILLIGRAM
     Route: 048
  6. LEVOTHYROXINE SODIUM [Concomitant]
     Active Substance: LEVOTHYROXINE SODIUM
     Indication: Product used for unknown indication
     Dosage: UNIT DOSE:0.1 MG. 1X1 DAYS (IN THE MORNING)
     Route: 048
  7. Zoxil [Concomitant]
     Indication: Product used for unknown indication
     Dosage: 1X1 DAYS (IN THE MORNING)?FORM STRENGTH: 10 MILLIGRAM
     Route: 048
  8. Zoxil [Concomitant]
     Indication: Product used for unknown indication
     Dosage: 1X1 DAYS (AT NIGHT)
  9. AMLODIPINE BESYLATE\PERINDOPRIL ARGININE [Concomitant]
     Active Substance: AMLODIPINE BESYLATE\PERINDOPRIL ARGININE
     Indication: Product used for unknown indication
     Dosage: 1X1 (IN THE MORNING, BEFORE EATING)
     Route: 048
  10. LAMICTAL [Concomitant]
     Active Substance: LAMOTRIGINE
     Indication: Product used for unknown indication
     Dosage: 1X1 DAYS (IN THE MORNING)
     Route: 048
  11. Rivetal [Concomitant]
     Indication: Product used for unknown indication
     Dosage: UNIT DOSE: 1.5 MG. 2X1 DAYS (MORNING -NIGHT)
     Route: 048
  12. BISOPROLOL FUMARATE [Concomitant]
     Active Substance: BISOPROLOL FUMARATE
     Indication: Hypertension
     Dosage: UNIT DOSE: HALF OF UNSPECIFIED FORM STRENGTH.
     Route: 048
  13. IRBESARTAN [Concomitant]
     Active Substance: IRBESARTAN
     Indication: Hypertension
     Route: 048
  14. Tavor [Concomitant]
     Indication: Product used for unknown indication
     Dosage: UNIT DOSE: 1.25 MG, FORM STRENGTH: 2.5 MG, 2X1 (MORNING - NOON)
     Route: 048

REACTIONS (6)
  - Motor dysfunction [Not Recovered/Not Resolved]
  - Hallucination [Unknown]
  - Device information output issue [Unknown]
  - Fall [Recovered/Resolved]
  - Bedridden [Not Recovered/Not Resolved]
  - Haematoma [Not Recovered/Not Resolved]

NARRATIVE: CASE EVENT DATE: 20250401
